FAERS Safety Report 5249476-0 (Version None)
Quarter: 2007Q1

REPORT INFORMATION
  Report Type: 
  Country: None (occurrence: None)
  Receive Date: 20070228
  Receipt Date: 20061121
  Transmission Date: 20070707
  Serious: No
  Sender: FDA-Public Use
  Company Number: 58181

PATIENT
  Age: 34 Year
  Sex: Male

DRUGS (2)
  1. VALTREX [Suspect]
     Indication: LABYRINTHITIS
     Dosage: 1000MG THREE TIMES PER DAY
     Route: 048
  2. LISINOPRIL [Suspect]
     Route: 048

REACTIONS (2)
  - FATIGUE [None]
  - MEDICATION ERROR [None]
